FAERS Safety Report 8011583-7 (Version None)
Quarter: 2011Q4

REPORT INFORMATION
  Report Type: 
  Country: None (occurrence: None)
  Receive Date: 20111228
  Receipt Date: 20111214
  Transmission Date: 20120403
  Serious: Yes (Hospitalization, Disabling, Other)
  Sender: FDA-Public Use
  Company Number: US-ROCHE-796913

PATIENT
  Sex: Male
  Weight: 70.6 kg

DRUGS (47)
  1. CEPHALEXIN [Concomitant]
     Indication: INFECTION
     Dosage: DOSE: 6 HOURLY
     Route: 048
  2. AMIODARONE [Concomitant]
     Route: 048
  3. ALBUTEROL [Concomitant]
     Dosage: 1 PUFF EVERY 4 HOURS AS NEEDED
     Route: 055
  4. CITALOPRAM HYDROBROMIDE [Concomitant]
     Route: 048
  5. SIMVASTATIN [Concomitant]
     Dosage: AT BEDTIME
     Route: 048
  6. DOCUSATE [Concomitant]
     Route: 048
  7. FLUCONAZOLE [Concomitant]
     Route: 048
  8. AVASTIN [Suspect]
     Indication: MACULAR DEGENERATION
     Dosage: DOSE: 1.25 MG/0.05ML EVERY 4-6 WEEKS
     Route: 050
     Dates: start: 20100824, end: 20110329
  9. PREDNISOLONE OPHTHALMIC [Concomitant]
     Dosage: EVERY 6 HOURLY
  10. DOCUSATE [Concomitant]
     Dosage: AT BED TIME
     Route: 048
  11. AMLODIPINE [Concomitant]
     Route: 048
  12. NOVOLIN 70/30 [Concomitant]
     Dosage: DOSAGE: SLIDING SCALE, BEFORE MEALS AND AT BED TIME
     Route: 058
  13. FINASTERIDE [Concomitant]
     Dosage: AT BED TIME
     Route: 048
  14. OMEPRAZOLE [Concomitant]
     Dosage: EVERY DAY BEFORE BREAKFAST
     Route: 048
  15. ATROPINE SULFATE 1% [Concomitant]
  16. HYDROCHLOROTHIAZIDE [Concomitant]
     Indication: HYPERTENSION
     Dosage: BEFORE BREAKFAST
     Route: 048
  17. LISINOPRIL [Concomitant]
     Route: 048
  18. MIRTAZAPINE [Concomitant]
     Dosage: AT BEDTIME
     Route: 048
  19. AMIODARONE [Concomitant]
     Route: 048
  20. ZINC OXIDE OINTMENT [Concomitant]
     Dosage: DOSAGE: AT LIBERAL AMOUNT ON AFFECTED AREA
     Route: 050
  21. LANTUS [Concomitant]
     Dosage: AT BED TIME
     Route: 058
  22. OLANZAPINE [Concomitant]
     Dosage: SCHEDULE: EVERY DAY AS NEEDED
     Route: 030
  23. POVIDONE-IODINE OINTMENT [Concomitant]
     Dosage: DOSAGE: SMALL AMOUNT EVERY DAY AT AFFECTED AREA
  24. PREDNISOLONE OPHTHALMIC [Concomitant]
     Dosage: DRUG REPORTED: PREDNISOLONE OPTH SUSP 1%
  25. ASPIRIN [Concomitant]
     Route: 048
  26. DOCUSATE [Concomitant]
     Route: 048
  27. LISINOPRIL [Concomitant]
     Route: 048
  28. RISPERIDONE [Concomitant]
     Dosage: EVERY EVENING
     Route: 048
  29. CARVEDILOL [Concomitant]
     Route: 048
  30. TIMOLOL MALEATE [Concomitant]
     Indication: GLAUCOMA
     Dosage: DORZOLAMIDE 2% /TIMOLOL 0.5%
  31. DORZOLAMIDE [Concomitant]
     Indication: GLAUCOMA
     Dosage: DORZOLAMIDE 2% /TIMOLOL 0.5%
  32. SIMVASTATIN [Concomitant]
     Indication: BLOOD CHOLESTEROL
     Dosage: EVERY EVENING
     Route: 048
  33. WARFARIN SODIUM [Concomitant]
     Dosage: DOSE AT BEDTIME
     Route: 048
  34. ASPIRIN [Concomitant]
     Dosage: DOSE AT NOON
     Route: 048
  35. MINERALS NOS/MULTIVITAMINS NOS [Concomitant]
     Route: 048
  36. HYDROCHLOROTHIAZIDE [Concomitant]
     Route: 048
  37. LANTUS [Concomitant]
     Dosage: AT BED TIME
     Route: 058
  38. RISPERIDONE [Concomitant]
     Dosage: EVERY 8 HOURLY
     Route: 048
  39. POLYETHYLENE GLYCOL [Concomitant]
     Dosage: 1 HEAPING TABLESPOONFUL EVERY DAY AS NEEDED MIX IN 8 OUNCES OF LIQUID.
     Route: 048
  40. POLYETHYLENE GLYCOL [Concomitant]
     Dosage: 1 HEAPING TABLESPOONFUL EVERY DAY AS NEEDED MIX IN 8 OUNCES OF LIQUID.
     Route: 048
  41. CARVEDILOL [Concomitant]
     Route: 048
  42. AMOXICILLIN [Concomitant]
     Route: 048
  43. ATROPINE SULFATE 1% [Concomitant]
  44. HYDROCODONE [Concomitant]
     Indication: PAIN
     Dosage: DOSE: 6 HOURLY
     Route: 048
  45. AMLODIPINE [Concomitant]
     Route: 048
  46. GALANTAMINE HYDROBROMIDE [Concomitant]
     Dosage: WITH BREATKFAST AND SUPPER
     Route: 048
  47. TAMSULOSIN HCL [Concomitant]
     Route: 048

REACTIONS (12)
  - BRAIN INJURY [None]
  - BLINDNESS [None]
  - INJECTION SITE INFECTION [None]
  - HAEMORRHAGE [None]
  - ALPHA HAEMOLYTIC STREPTOCOCCAL INFECTION [None]
  - MENINGITIS [None]
  - PRODUCT CONTAMINATION MICROBIAL [None]
  - MENINGOENCEPHALITIS BACTERIAL [None]
  - MENTAL STATUS CHANGES [None]
  - PAIN [None]
  - PRODUCT QUALITY ISSUE [None]
  - TRANSMISSION OF AN INFECTIOUS AGENT VIA A MEDICINAL PRODUCT [None]
